FAERS Safety Report 17962719 (Version 5)
Quarter: 2023Q1

REPORT INFORMATION
  Report Type: Report from Study
  Country: US (occurrence: US)
  Receive Date: 20200630
  Receipt Date: 20230224
  Transmission Date: 20230417
  Serious: Yes (Other)
  Sender: FDA-Public Use
  Company Number: US-ARRAY-2020-07490

PATIENT
  Age: 73 Year
  Sex: Female
  Weight: 69.6 kg

DRUGS (5)
  1. BINIMETINIB [Suspect]
     Active Substance: BINIMETINIB
     Indication: Non-small cell lung cancer
     Dosage: 45 MG, TWICE DAILY CONTINUOUS
     Route: 048
     Dates: start: 20200213, end: 20200305
  2. ENCORAFENIB [Suspect]
     Active Substance: ENCORAFENIB
     Indication: Non-small cell lung cancer
     Dosage: 450 MG, ONCE DAILY CONTINUOUS
     Route: 048
     Dates: start: 20200213, end: 20200305
  3. ASPIRIN [Concomitant]
     Active Substance: ASPIRIN
     Indication: Cardiac disorder
     Dosage: UNK
     Dates: start: 20190502
  4. ASPIRIN [Concomitant]
     Active Substance: ASPIRIN
     Indication: Anticoagulant therapy
  5. SIMVASTATIN [Concomitant]
     Active Substance: SIMVASTATIN
     Indication: Blood cholesterol
     Dosage: UNK
     Dates: start: 20190502

REACTIONS (3)
  - Peripheral embolism [Recovered/Resolved]
  - Nausea [Recovered/Resolved]
  - Back pain [Recovered/Resolved]

NARRATIVE: CASE EVENT DATE: 20200229
